FAERS Safety Report 9928760 (Version 1)
Quarter: 2014Q1

REPORT INFORMATION
  Report Type: Spontaneous
  Country: US (occurrence: None)
  Receive Date: 20140225
  Receipt Date: 20140225
  Transmission Date: 20141002
  Serious: Yes (Other)
  Sender: FDA-Public Use
  Company Number: 2013-US-002080

PATIENT
  Age: 18 Year
  Sex: Female
  Weight: 84.4 kg

DRUGS (3)
  1. XYREM [Suspect]
     Indication: NARCOLEPSY
     Route: 048
     Dates: start: 201309, end: 2013
  2. RITALIN [Concomitant]
  3. LAMICTAL (LAMOTRIGINE) [Concomitant]

REACTIONS (1)
  - Convulsion [None]
